FAERS Safety Report 16451255 (Version 1)
Quarter: 2019Q2

REPORT INFORMATION
  Report Type: Spontaneous
  Country: MY (occurrence: MY)
  Receive Date: 20190619
  Receipt Date: 20190619
  Transmission Date: 20190711
  Serious: Yes (Other)
  Sender: FDA-Public Use
  Company Number: MY-PFIZER INC-2019261533

PATIENT
  Age: 70 Year

DRUGS (1)
  1. LYRICA [Suspect]
     Active Substance: PREGABALIN
     Indication: URAEMIC PRURITUS
     Dosage: 50 MG, 2X/DAY

REACTIONS (4)
  - Immobile [Unknown]
  - Dyskinesia [Unknown]
  - Off label use [Unknown]
  - Product use in unapproved indication [Unknown]
